FAERS Safety Report 11660228 (Version 1)
Quarter: 2015Q4

REPORT INFORMATION
  Report Type: Spontaneous
  Country: US (occurrence: US)
  Receive Date: 20151026
  Receipt Date: 20151026
  Transmission Date: 20160304
  Serious: No
  Sender: FDA-Public Use
  Company Number: US-MEDA-2011020018

PATIENT
  Age: 90 Year
  Sex: Male

DRUGS (1)
  1. ASTEPRO [Suspect]
     Active Substance: AZELASTINE HYDROCHLORIDE

REACTIONS (2)
  - Eye irritation [Recovered/Resolved]
  - Accidental exposure to product [Recovered/Resolved]

NARRATIVE: CASE EVENT DATE: 20110207
